FAERS Safety Report 8083321-3 (Version None)
Quarter: 2012Q1

REPORT INFORMATION
  Report Type: 
  Country: None (occurrence: None)
  Receive Date: 20120127
  Receipt Date: 20110114
  Transmission Date: 20120608
  Serious: No
  Sender: FDA-Public Use
  Company Number: US-ABBOTT-11P-163-0697582-00

PATIENT
  Age: 61 Year
  Sex: Female

DRUGS (12)
  1. FLEXERIL [Concomitant]
     Indication: PAIN
  2. HUMIRA [Suspect]
     Indication: RHEUMATOID ARTHRITIS
     Dates: start: 20100701
  3. ATENOLOL [Concomitant]
     Indication: HYPERTENSION
  4. EFFEXOR XR [Concomitant]
     Indication: DEPRESSION
     Dosage: 2-300MG TWICE A DAY
  5. ESTRACE [Concomitant]
     Indication: HORMONE REPLACEMENT THERAPY
  6. HYDROTHORAZINE [Concomitant]
     Indication: ANXIETY
     Dosage: TWICE A DAY AS NEEDED
  7. TRAZODONE HCL [Concomitant]
     Indication: INSOMNIA
     Dosage: 1 OR 1.5 TABLET AT BEDTIME
  8. AMLODIPINE [Concomitant]
     Indication: HYPERTENSION
  9. PRAVACHOL [Concomitant]
     Indication: BLOOD CHOLESTEROL INCREASED
  10. NEURONTIN [Concomitant]
     Indication: DEPRESSION
  11. SINGULAIR [Concomitant]
     Indication: ASTHMA
  12. NALTREXONE [Concomitant]
     Indication: ALCOHOLISM

REACTIONS (1)
  - INJECTION SITE PAPULE [None]
